FAERS Safety Report 10281858 (Version 1)
Quarter: 2014Q3

REPORT INFORMATION
  Report Type: Spontaneous
  Country: IN (occurrence: IN)
  Receive Date: 20140707
  Receipt Date: 20140707
  Transmission Date: 20150326
  Serious: Yes (Death, Hospitalization, Other)
  Sender: FDA-Public Use
  Company Number: IN-ASTRAZENECA-2014SE48917

PATIENT
  Age: 70 Year
  Sex: Male

DRUGS (6)
  1. TIROFIBAN [Concomitant]
     Active Substance: TIROFIBAN
     Indication: ACUTE CORONARY SYNDROME
     Route: 041
  2. BRILINTA [Suspect]
     Active Substance: TICAGRELOR
     Indication: ACUTE CORONARY SYNDROME
     Route: 048
  3. ASPIRIN. [Concomitant]
     Active Substance: ASPIRIN
     Indication: ACUTE CORONARY SYNDROME
  4. HEPARIN [Concomitant]
     Active Substance: HEPARIN SODIUM
     Indication: ACUTE CORONARY SYNDROME
     Route: 040
  5. HEPARIN [Concomitant]
     Active Substance: HEPARIN SODIUM
     Indication: ACUTE CORONARY SYNDROME
     Route: 041
  6. TIROFIBAN [Concomitant]
     Active Substance: TIROFIBAN
     Indication: ACUTE CORONARY SYNDROME
     Route: 040

REACTIONS (1)
  - Post procedural haemorrhage [Fatal]
